FAERS Safety Report 5050147-4 (Version None)
Quarter: 2006Q3

REPORT INFORMATION
  Report Type: 
  Country: None (occurrence: None)
  Receive Date: 20060713
  Receipt Date: 20060420
  Transmission Date: 20061208
  Serious: Yes (Hospitalization)
  Sender: FDA-Public Use
  Company Number: PHRM2006FR01380

PATIENT
  Age: 59 Year
  Sex: Female

DRUGS (14)
  1. SPECIAFOLDINE [Concomitant]
  2. FONZYLANE [Concomitant]
  3. TAHOR [Concomitant]
  4. EZETROL [Concomitant]
     Indication: HYPERCHOLESTEROLAEMIA
  5. LASILIX [Concomitant]
     Dosage: 125 MG PER DAY
  6. CELLCEPT [Concomitant]
     Indication: RENAL TRANSPLANT
     Dosage: 1 G, BID
  7. CORTANCYL [Concomitant]
     Dosage: 10 MG DAILY
  8. PROGRAF [Concomitant]
     Indication: RENAL TRANSPLANT
     Dosage: 6 MG DAILY
  9. VITAMIN B-12 [Concomitant]
     Dosage: 1 DF, QW
  10. CALCIPARINE [Concomitant]
  11. INSULIN MIXTARD [Concomitant]
  12. OGAST [Concomitant]
  13. EPINEPHRINE [Concomitant]
  14. AREDIA [Suspect]
     Indication: HYPERCALCAEMIA OF MALIGNANCY
     Dosage: 30 MG, ONCE/SINGLE
     Route: 042
     Dates: start: 20060415, end: 20060415

REACTIONS (4)
  - BLOOD CREATININE INCREASED [None]
  - LOCALISED OEDEMA [None]
  - RENAL FAILURE ACUTE [None]
  - RENAL TUBULAR DISORDER [None]
